FAERS Safety Report 12174057 (Version 2)
Quarter: 2016Q2

REPORT INFORMATION
  Report Type: Spontaneous
  Country: US (occurrence: US)
  Receive Date: 20160314
  Receipt Date: 20160527
  Transmission Date: 20160815
  Serious: No
  Sender: FDA-Public Use
  Company Number: US-ASTRAZENECA-2016SE27154

PATIENT
  Age: 72 Year
  Sex: Female
  Weight: 54 kg

DRUGS (3)
  1. MEDICINES FOR HIGH BLOOD PRESSURE [Concomitant]
  2. MEDICINES FOR CHOLESTEROL [Concomitant]
  3. NEXIUM 24HR [Suspect]
     Active Substance: ESOMEPRAZOLE MAGNESIUM
     Indication: GASTROOESOPHAGEAL REFLUX DISEASE
     Dosage: 44.6MG UNKNOWN
     Route: 048

REACTIONS (4)
  - Drug effect incomplete [Unknown]
  - Product quality issue [Unknown]
  - Condition aggravated [Unknown]
  - Gastrooesophageal reflux disease [Unknown]
